FAERS Safety Report 5097296-2 (Version None)
Quarter: 2006Q3

REPORT INFORMATION
  Report Type: 
  Country: None (occurrence: None)
  Receive Date: 20060906
  Receipt Date: 20060522
  Transmission Date: 20061208
  Serious: Yes (Hospitalization)
  Sender: FDA-Public Use
  Company Number: PHHO2006DE08211

PATIENT
  Age: 52 Year
  Sex: Female
  Weight: 62.1 kg

DRUGS (3)
  1. NEORAL [Concomitant]
     Indication: RENAL TRANSPLANT
     Dosage: 180 MG/DAY
     Route: 048
     Dates: start: 20040809
  2. METHYLPREDNISOLONE [Concomitant]
     Indication: RENAL TRANSPLANT
     Dosage: 4 MG/DAY
     Route: 048
     Dates: start: 20040809
  3. MYFORTIC [Suspect]
     Indication: RENAL TRANSPLANT
     Dosage: 720 MG/DAY
     Route: 048
     Dates: start: 20060201, end: 20060315

REACTIONS (3)
  - ABDOMINAL PAIN [None]
  - ANOREXIA [None]
  - PANCREATITIS ACUTE [None]
